FAERS Safety Report 10523530 (Version 2)
Quarter: 2014Q4

REPORT INFORMATION
  Report Type: Spontaneous
  Country: IT (occurrence: IT)
  Receive Date: 20141017
  Receipt Date: 20141127
  Transmission Date: 20150528
  Serious: Yes (Hospitalization)
  Sender: FDA-Public Use
  Company Number: IT-ROCHE-1476078

PATIENT
  Age: 44 Year
  Sex: Male

DRUGS (2)
  1. XELODA [Suspect]
     Active Substance: CAPECITABINE
     Indication: RECTAL CANCER METASTATIC
     Route: 048
     Dates: start: 20131030, end: 20131112
  2. OXALIPLATINO [Suspect]
     Active Substance: OXALIPLATIN
     Indication: RECTAL CANCER METASTATIC
     Route: 042
     Dates: start: 20131029, end: 20131029

REACTIONS (4)
  - Abdominal pain [Recovered/Resolved]
  - Megacolon [Recovered/Resolved]
  - Diarrhoea [Recovered/Resolved]
  - Colitis [Recovered/Resolved]

NARRATIVE: CASE EVENT DATE: 20131114
